FAERS Safety Report 17305719 (Version 1)
Quarter: 2020Q1

REPORT INFORMATION
  Report Type: Report from Study
  Country: CO (occurrence: CO)
  Receive Date: 20200123
  Receipt Date: 20200123
  Transmission Date: 20200409
  Serious: Yes (Other)
  Sender: FDA-Public Use
  Company Number: CO-ROCHE-2464761

PATIENT
  Sex: Female

DRUGS (2)
  1. MABTHERA [Suspect]
     Active Substance: RITUXIMAB
     Indication: PRODUCT USED FOR UNKNOWN INDICATION
     Route: 065
  2. BEVACIZUMAB. [Suspect]
     Active Substance: BEVACIZUMAB
     Indication: PRODUCT USED FOR UNKNOWN INDICATION
     Route: 065

REACTIONS (23)
  - Basophil count increased [Unknown]
  - Peripheral swelling [Unknown]
  - Arthritis [Unknown]
  - Discomfort [Unknown]
  - Acne [Unknown]
  - Gait inability [Unknown]
  - Pain [Unknown]
  - Disability [Recovering/Resolving]
  - Hypersensitivity [Recovering/Resolving]
  - Blood cholesterol increased [Unknown]
  - Immunodeficiency [Unknown]
  - Viral infection [Unknown]
  - Weight decreased [Unknown]
  - Hydrocephalus [Unknown]
  - Malaise [Unknown]
  - Tachycardia [Recovering/Resolving]
  - Arthralgia [Recovered/Resolved]
  - Meningitis [Unknown]
  - Plicated tongue [Recovering/Resolving]
  - Depressed mood [Unknown]
  - Injury [Recovering/Resolving]
  - Hypotension [Unknown]
  - Feeling abnormal [Unknown]
